FAERS Safety Report 14473352 (Version 3)
Quarter: 2018Q1

REPORT INFORMATION
  Report Type: Report from Study
  Country: None (occurrence: BE)
  Receive Date: 20180201
  Receipt Date: 20180216
  Transmission Date: 20180509
  Serious: Yes (Hospitalization, Other)
  Sender: FDA-Public Use
  Company Number: BE-ABBVIE-18K-013-2242135-00

PATIENT
  Age: 63 Year
  Sex: Male

DRUGS (4)
  1. DUODOPA [Suspect]
     Active Substance: CARBIDOPA\LEVODOPA
     Indication: PARKINSON^S DISEASE
     Dosage: AM: 10ML; CD: 4.5ML/H FOR 16 HRS; ED: 5ML
     Route: 050
     Dates: start: 20110627, end: 20110701
  2. DUODOPA [Suspect]
     Active Substance: CARBIDOPA\LEVODOPA
     Dosage: AM: 8ML; CD: 3ML/H FOR 16 HTS; ED: 3.5ML
     Route: 050
     Dates: start: 20180130
  3. DUODOPA [Suspect]
     Active Substance: CARBIDOPA\LEVODOPA
     Dosage: DOSES CONTINUOUSLY MONITORED AND ADJUSTED
     Route: 050
     Dates: start: 20110701, end: 20170424
  4. DUODOPA [Suspect]
     Active Substance: CARBIDOPA\LEVODOPA
     Dosage: AM: 8ML; CD: 4.4ML/H FOR 16 HTS; ED: 3.5ML
     Route: 050
     Dates: start: 20170425, end: 20180130

REACTIONS (6)
  - Postoperative wound complication [Unknown]
  - Confusional state [Not Recovered/Not Resolved]
  - Somnolence [Unknown]
  - Malaise [Unknown]
  - Limb injury [Recovering/Resolving]
  - Fall [Recovered/Resolved]

NARRATIVE: CASE EVENT DATE: 20180111
